FAERS Safety Report 5381984-4 (Version None)
Quarter: 2007Q3

REPORT INFORMATION
  Report Type: 
  Country: None (occurrence: None)
  Receive Date: 20070709
  Receipt Date: 20070705
  Transmission Date: 20080115
  Serious: Yes (Other)
  Sender: FDA-Public Use
  Company Number: B0472454A

PATIENT
  Age: 67 Year
  Sex: Female
  Weight: 53 kg

DRUGS (6)
  1. PAXIL [Suspect]
     Indication: PANIC DISORDER
     Dosage: 20MG PER DAY
     Route: 048
     Dates: start: 20070515
  2. OMEPRAZEN [Concomitant]
     Dosage: 10MG PER DAY
     Route: 048
     Dates: start: 20060828
  3. RYTHMODAN [Concomitant]
     Indication: ATRIAL FIBRILLATION
     Dosage: 300MG PER DAY
     Route: 048
     Dates: start: 20060903
  4. DEPAS [Concomitant]
     Indication: ANXIETY
     Dosage: .5MG PER DAY
     Route: 048
     Dates: start: 20060909
  5. ARTIST [Concomitant]
     Indication: ATRIAL FIBRILLATION
     Dosage: 2.5MG PER DAY
     Route: 048
     Dates: start: 20060903
  6. WARFARIN SODIUM [Concomitant]
     Indication: ATRIAL FIBRILLATION
     Dosage: 2MG PER DAY
     Route: 048
     Dates: start: 20060903

REACTIONS (6)
  - DYSURIA [None]
  - HYPERTONIC BLADDER [None]
  - INTENTION TREMOR [None]
  - MUSCLE RIGIDITY [None]
  - PARKINSONISM [None]
  - POLLAKIURIA [None]
